FAERS Safety Report 4741451-5 (Version None)
Quarter: 2005Q3

REPORT INFORMATION
  Report Type: 
  Country: None (occurrence: None)
  Receive Date: 20050808
  Receipt Date: 20050726
  Transmission Date: 20060218
  Serious: Yes (Other)
  Sender: FDA-Public Use
  Company Number: 2005026287

PATIENT
  Sex: Female

DRUGS (10)
  1. ZOLOFT [Suspect]
     Indication: DEPRESSION
     Dosage: 50 MG (1 D), ORAL
     Route: 048
     Dates: start: 19990101
  2. FLAGYL [Suspect]
     Indication: ILL-DEFINED DISORDER
  3. AMOXICILLIN [Suspect]
     Indication: ILL-DEFINED DISORDER
     Dosage: 500 MG
  4. IBUPROFEN [Concomitant]
     Indication: PAIN
  5. ALL OTHER THERAPEUTIC PRODUCTS (ALL OTHER THERAPEUTIC PRODUCTS) [Concomitant]
  6. VITAMINS (VITAMINS) [Concomitant]
  7. TUMS (CALCIUM CARBONATE) [Concomitant]
  8. ORTHO TRI-CYCLEN [Concomitant]
  9. ZOMIG [Concomitant]
  10. ACYCLOVIR [Concomitant]

REACTIONS (36)
  - ABDOMINAL PAIN [None]
  - BACK PAIN [None]
  - BODY MASS INDEX INCREASED [None]
  - BUNION [None]
  - CHRONIC SINUSITIS [None]
  - CRYING [None]
  - DEPRESSION [None]
  - DIZZINESS [None]
  - DRUG HYPERSENSITIVITY [None]
  - DRY MOUTH [None]
  - DYSPLASIA [None]
  - EAR INFECTION [None]
  - EAR PAIN [None]
  - EMOTIONAL DISORDER [None]
  - FEELING ABNORMAL [None]
  - FEELING JITTERY [None]
  - HEADACHE [None]
  - HYPOAESTHESIA [None]
  - LIBIDO DECREASED [None]
  - METRORRHAGIA [None]
  - MIGRAINE [None]
  - MOVEMENT DISORDER [None]
  - MUSCLE SPASMS [None]
  - NASAL CONGESTION [None]
  - PAIN [None]
  - PAIN IN EXTREMITY [None]
  - PARAESTHESIA [None]
  - RASH [None]
  - RHINITIS [None]
  - RHINORRHOEA [None]
  - SCAR [None]
  - STRESS [None]
  - TEMPOROMANDIBULAR JOINT SYNDROME [None]
  - TOBACCO ABUSE [None]
  - WEIGHT DECREASED [None]
  - WEIGHT INCREASED [None]
